FAERS Safety Report 9478443 (Version 1)
Quarter: 2013Q3

REPORT INFORMATION
  Report Type: Spontaneous
  Country: ES (occurrence: ES)
  Receive Date: 20130827
  Receipt Date: 20130827
  Transmission Date: 20140515
  Serious: Yes (Hospitalization, Other)
  Sender: FDA-Public Use
  Company Number: ES-ELI_LILLY_AND_COMPANY-ES201308007410

PATIENT
  Age: 49 Year
  Sex: Male

DRUGS (3)
  1. FLUOXETINE HYDROCHLORIDE [Suspect]
     Indication: DEPRESSION
     Dosage: 20 MG, QD
     Dates: start: 199508
  2. SULPRIDE [Concomitant]
     Dosage: 100 MG, QD
     Dates: start: 199508
  3. DIAZEPAM [Concomitant]
     Dosage: 10 MG, QD
     Dates: start: 199508

REACTIONS (1)
  - Cholestasis [Recovered/Resolved]
